FAERS Safety Report 19297648 (Version 4)
Quarter: 2021Q3

REPORT INFORMATION
  Report Type: Report from Study
  Country: IL (occurrence: IL)
  Receive Date: 20210524
  Receipt Date: 20210729
  Transmission Date: 20211014
  Serious: Yes (Death, Hospitalization)
  Sender: FDA-Public Use
  Company Number: IL-TG THERAPEUTICS INC.-TGT001966

PATIENT

DRUGS (2)
  1. UMBRALISIB [Suspect]
     Active Substance: UMBRALISIB
     Indication: NON-HODGKIN^S LYMPHOMA
     Dosage: 800 MILLIGRAM, QD
     Route: 048
     Dates: start: 20201210, end: 20210501
  2. UBLITUXIMAB [Suspect]
     Active Substance: UBLITUXIMAB
     Indication: NON-HODGKIN^S LYMPHOMA
     Dosage: 900 MILLIGRAM, MONTHLY
     Route: 042
     Dates: start: 20201210, end: 20210401

REACTIONS (2)
  - COVID-19 [Fatal]
  - Diarrhoea infectious [Fatal]

NARRATIVE: CASE EVENT DATE: 20210519
